FAERS Safety Report 5181777-7 (Version None)
Quarter: 2006Q4

REPORT INFORMATION
  Report Type: 
  Country: None (occurrence: None)
  Receive Date: 20061220
  Receipt Date: 20061212
  Transmission Date: 20070319
  Serious: Yes (Other)
  Sender: FDA-Public Use
  Company Number: DE-JNJFOC-20061202812

PATIENT

DRUGS (1)
  1. IMODIUM [Suspect]
     Indication: DRUG USE FOR UNKNOWN INDICATION
     Dosage: 40 CAPSULES
     Route: 065

REACTIONS (1)
  - INTENTIONAL OVERDOSE [None]
